FAERS Safety Report 9447313 (Version 1)
Quarter: 2013Q3

REPORT INFORMATION
  Report Type: Spontaneous
  Country: US (occurrence: US)
  Receive Date: 20130808
  Receipt Date: 20130808
  Transmission Date: 20140515
  Serious: No
  Sender: FDA-Public Use
  Company Number: US-BIOGENIDEC-2013BI071197

PATIENT
  Age: 46 Year
  Sex: Female
  Weight: 143 kg

DRUGS (16)
  1. AVONEX [Suspect]
     Indication: MULTIPLE SCLEROSIS
     Route: 030
  2. AMPYRA [Concomitant]
     Indication: MULTIPLE SCLEROSIS
     Route: 048
     Dates: start: 2010, end: 2013
  3. AMPYRA [Concomitant]
     Indication: GAIT DISTURBANCE
     Route: 048
     Dates: start: 2010, end: 2013
  4. CALTRATE 660 PLUS D [Concomitant]
  5. FEMARA (LETROZOLE) [Concomitant]
  6. FOLIC ACID [Concomitant]
  7. MELOXICAM [Concomitant]
  8. SIMVASTATIN [Concomitant]
  9. IBUPROFEN [Concomitant]
     Dates: end: 20130613
  10. TRIAMTERENE HCTZ [Concomitant]
  11. CITALOPRAM HYDROBROMIDE [Concomitant]
  12. CELEBREX [Concomitant]
  13. CYCLOBENZAPRINE HYDROCHLORIDE [Concomitant]
  14. VITAMIN D (ERGOCALCIFEROL) [Concomitant]
  15. CYMBALTA [Concomitant]
  16. RITALIN (METHLYPHENIDATE HYDROCHORIDE) [Concomitant]
     Indication: SOMNOLENCE

REACTIONS (4)
  - Influenza like illness [Unknown]
  - Multiple sclerosis [Unknown]
  - Somnolence [Recovered/Resolved]
  - Insomnia [Unknown]
